FAERS Safety Report 4988527-5 (Version None)
Quarter: 2006Q2

REPORT INFORMATION
  Report Type: 
  Country: None (occurrence: None)
  Receive Date: 20060426
  Receipt Date: 20060413
  Transmission Date: 20061013
  Serious: Yes (Hospitalization)
  Sender: FDA-Public Use
  Company Number: 2006JP001090

PATIENT
  Age: 63 Year
  Sex: Female

DRUGS (6)
  1. FUNGUARD (MICAFUNGIN) INJECTION [Suspect]
     Indication: FUNGAL INFECTION
     Dosage: 150 MG, D, IV DRIP
     Route: 041
     Dates: start: 20060412, end: 20060412
  2. DIART (AZOSIDE) TABLET [Concomitant]
  3. LIPITOR [Concomitant]
  4. UNIFYL TABLET [Concomitant]
  5. SINGULAIR [Concomitant]
  6. SPIROPENT (CLENBUTEROL HYDROCHLORIDE) [Concomitant]

REACTIONS (5)
  - BLOOD CREATINE PHOSPHOKINASE INCREASED [None]
  - CHILLS [None]
  - HAEMATURIA [None]
  - HEPATIC FUNCTION ABNORMAL [None]
  - PALPITATIONS [None]
